FAERS Safety Report 6852494-X (Version None)
Quarter: 2010Q3

REPORT INFORMATION
  Report Type: 
  Country: None (occurrence: None)
  Receive Date: 20100717
  Receipt Date: 20071115
  Transmission Date: 20110219
  Serious: No
  Sender: FDA-Public Use
  Company Number: US-PFIZER INC-2007098746

PATIENT
  Sex: Female
  Weight: 68.2 kg

DRUGS (7)
  1. CHANTIX [Suspect]
     Indication: SMOKING CESSATION THERAPY
     Dates: start: 20071106, end: 20071101
  2. MONOPRIL [Concomitant]
  3. NORVASC [Concomitant]
  4. VYTORIN [Concomitant]
  5. ANTIBIOTICS [Concomitant]
  6. CALCIUM [Concomitant]
  7. FOSAMAX [Concomitant]

REACTIONS (3)
  - ABDOMINAL PAIN [None]
  - FLATULENCE [None]
  - NAUSEA [None]
